FAERS Safety Report 9575108 (Version 2)
Quarter: 2013Q4

REPORT INFORMATION
  Report Type: Report from Study
  Country: US (occurrence: US)
  Receive Date: 20131001
  Receipt Date: 20131001
  Transmission Date: 20140711
  Serious: Yes (Disabling)
  Sender: FDA-Public Use
  Company Number: US-PFIZER INC-2011250845

PATIENT
  Age: 58 Year
  Sex: Male
  Weight: 74.1 kg

DRUGS (13)
  1. TOFACITINIB CITRATE [Suspect]
     Indication: RHEUMATOID ARTHRITIS
     Dosage: 10 MG, 2X/DAY
     Route: 048
     Dates: start: 20101104, end: 20110913
  2. TOFACITINIB CITRATE [Suspect]
     Dosage: 10 MG, 1X/DAY
     Route: 048
     Dates: start: 20110914, end: 20110914
  3. METHOTREXATE [Suspect]
     Indication: RHEUMATOID ARTHRITIS
     Dosage: 10 MG, WEEKLY
     Route: 048
     Dates: start: 20100809, end: 20110913
  4. FOLIC ACID [Concomitant]
     Indication: RHEUMATOID ARTHRITIS
     Dosage: 4 MG, 1X/DAY
     Route: 048
     Dates: start: 20070329
  5. ALEVE [Concomitant]
     Indication: PAIN
     Dosage: 400 MG, 1X/DAY
     Route: 048
     Dates: start: 20090701
  6. CHONDROITIN/GLUCOSAMINE [Concomitant]
     Indication: RHEUMATOID ARTHRITIS
     Dosage: UNK, DAILY
     Route: 048
     Dates: start: 20040521
  7. LIPITOR [Concomitant]
     Indication: BLOOD CHOLESTEROL INCREASED
     Dosage: 10 MG, DAILY
     Route: 048
     Dates: start: 20110105
  8. METOPROLOL [Concomitant]
     Indication: HYPERTENSION
     Dosage: 50 MG, DAILY
     Route: 048
     Dates: start: 20040521
  9. ALENDRONATE SODIUM [Concomitant]
     Indication: BONE DISORDER
     Dosage: 70 MG, WEEKLY
     Route: 048
     Dates: start: 20090218
  10. CALCIUM [Concomitant]
     Indication: PROPHYLAXIS
     Dosage: UNK, DAILY
     Route: 048
     Dates: start: 20040521
  11. ACETYLSALICYLIC ACID [Concomitant]
     Indication: PROPHYLAXIS
     Dosage: 81 MG, DAILY
     Route: 048
     Dates: start: 20040521
  12. FISH OIL [Concomitant]
     Indication: PROPHYLAXIS
     Dosage: UNK, DAILY
     Route: 048
     Dates: start: 20040521
  13. MULTIVITAMINS [Concomitant]
     Indication: SUPPLEMENTATION THERAPY
     Dosage: UNK, DAILY
     Route: 048
     Dates: start: 20040521

REACTIONS (4)
  - Visual acuity reduced [Recovering/Resolving]
  - Eye infection fungal [Recovered/Resolved]
  - Ulcerative keratitis [Recovered/Resolved]
  - Ophthalmic herpes simplex [Recovered/Resolved]
